FAERS Safety Report 16197904 (Version 1)
Quarter: 2019Q2

REPORT INFORMATION
  Report Type: Spontaneous
  Country: US (occurrence: US)
  Receive Date: 20190412
  Receipt Date: 20190412
  Transmission Date: 20190711
  Serious: Yes (Hospitalization)
  Sender: FDA-Public Use
  Company Number: None

PATIENT
  Age: 91 Year
  Sex: Male

DRUGS (2)
  1. DABIGATRAN [Suspect]
     Active Substance: DABIGATRAN
  2. ASPIRIN. [Suspect]
     Active Substance: ASPIRIN

REACTIONS (2)
  - Lower gastrointestinal haemorrhage [None]
  - Anaemia [None]

NARRATIVE: CASE EVENT DATE: 20181206
